FAERS Safety Report 16251260 (Version 2)
Quarter: 2019Q3

REPORT INFORMATION
  Report Type: Report from Study
  Country: IT (occurrence: IT)
  Receive Date: 20190429
  Receipt Date: 20190701
  Transmission Date: 20191004
  Serious: Yes (Hospitalization)
  Sender: FDA-Public Use
  Company Number: IT-MYLANLABS-2019M1039124

PATIENT
  Age: 72 Year
  Sex: Female

DRUGS (2)
  1. ALMARYTM 100 MG COMPRESSE [Suspect]
     Active Substance: FLECAINIDE ACETATE
     Indication: ARRHYTHMIA
     Dosage: 300 MILLIGRAM, TOTAL
     Route: 048
     Dates: start: 20180925, end: 20180925
  2. BISOPROLOL [Suspect]
     Active Substance: BISOPROLOL
     Indication: HYPERTENSION
     Dosage: 7.5 MILLIGRAM, TOTAL
     Route: 048
     Dates: start: 20180925, end: 20180925

REACTIONS (2)
  - Presyncope [Recovering/Resolving]
  - Medication error [Recovering/Resolving]

NARRATIVE: CASE EVENT DATE: 20180925
